FAERS Safety Report 10553991 (Version 4)
Quarter: 2015Q2

REPORT INFORMATION
  Report Type: Spontaneous
  Country: GB (occurrence: GB)
  Receive Date: 20141030
  Receipt Date: 20150424
  Transmission Date: 20150821
  Serious: Yes (Death)
  Sender: FDA-Public Use
  Company Number: PHFR2014GB007452

PATIENT
  Sex: Female

DRUGS (1)
  1. CLOZARIL [Suspect]
     Active Substance: CLOZAPINE
     Indication: PARKINSON^S DISEASE PSYCHOSIS
     Dosage: UNK
     Route: 048
     Dates: start: 20140124

REACTIONS (3)
  - Neoplasm malignant [Fatal]
  - Sepsis [Fatal]
  - Pneumonia [Fatal]
